FAERS Safety Report 9459759 (Version 1)
Quarter: 2013Q3

REPORT INFORMATION
  Report Type: Spontaneous
  Country: AU (occurrence: AU)
  Receive Date: 20130815
  Receipt Date: 20130815
  Transmission Date: 20140515
  Serious: Yes (Other)
  Sender: FDA-Public Use
  Company Number: AU-ASTELLAS-2013JP008487

PATIENT
  Age: 90 Year
  Sex: Male

DRUGS (1)
  1. SOLIFENACIN [Suspect]
     Route: 048

REACTIONS (1)
  - Pulmonary fibrosis [Unknown]
